FAERS Safety Report 25935141 (Version 1)
Quarter: 2025Q4

REPORT INFORMATION
  Report Type: Spontaneous
  Country: US (occurrence: US)
  Receive Date: 20251017
  Receipt Date: 20251017
  Transmission Date: 20260117
  Serious: No
  Sender: MACLEODS
  Company Number: US-MACLEODS PHARMA-MAC2025055826

PATIENT

DRUGS (2)
  1. ESCITALOPRAM [Suspect]
     Active Substance: ESCITALOPRAM OXALATE
     Indication: Stress
     Dosage: TABLETS 10 MG BY MOUTH ONCE DAILY SINCE 2012, REPORTED AS 13 YEARS,
     Route: 048
     Dates: start: 2012
  2. LOSARTAN [Concomitant]
     Active Substance: LOSARTAN
     Indication: Product used for unknown indication
     Route: 065

REACTIONS (3)
  - Hyperhidrosis [Unknown]
  - Libido decreased [Unknown]
  - Fatigue [Unknown]
